FAERS Safety Report 6270536-X (Version None)
Quarter: 2009Q3

REPORT INFORMATION
  Report Type: 
  Country: None (occurrence: None)
  Receive Date: 20090716
  Receipt Date: 20090708
  Transmission Date: 20100115
  Serious: Yes (Hospitalization, Other)
  Sender: FDA-Public Use
  Company Number: TN-PFIZER INC-2009238172

PATIENT
  Age: 59 Year

DRUGS (5)
  1. CELECOXIB [Suspect]
     Indication: TENDONITIS
     Dosage: 200 MG, 2X/DAY
     Route: 048
  2. INDAPAMIDE [Concomitant]
     Route: 048
  3. RAMIPRIL [Concomitant]
     Route: 048
  4. CAFFEINE/DEXTROPROPOXYPHENE/PARACETAMOL [Concomitant]
     Route: 048
  5. KETOPROFEN [Concomitant]

REACTIONS (1)
  - HYPERTENSIVE CRISIS [None]
